FAERS Safety Report 19132756 (Version 1)
Quarter: 2021Q2

REPORT INFORMATION
  Report Type: Spontaneous
  Country: GB (occurrence: GB)
  Receive Date: 20210413
  Receipt Date: 20210413
  Transmission Date: 20210717
  Serious: Yes (Other)
  Sender: FDA-Public Use
  Company Number: GB-RISING PHARMA HOLDINGS, INC.-2021RIS000031

PATIENT
  Age: 73 Year
  Sex: Male

DRUGS (7)
  1. COTRIMOXAZOLE [Concomitant]
     Active Substance: SULFAMETHOXAZOLE\TRIMETHOPRIM
     Indication: GLOMERULONEPHRITIS
     Dosage: 480 MILLIGRAM, QD
     Route: 065
  2. AZATHIOPRINE. [Suspect]
     Active Substance: AZATHIOPRINE
     Indication: GLOMERULONEPHRITIS
     Dosage: 125 MILLIGRAM, QD
     Route: 065
  3. FOLIC ACID. [Concomitant]
     Active Substance: FOLIC ACID
     Indication: PRODUCT USED FOR UNKNOWN INDICATION
     Dosage: 5 MILLIGRAM, BID
  4. RANITIDINE. [Concomitant]
     Active Substance: RANITIDINE
     Indication: PRODUCT USED FOR UNKNOWN INDICATION
     Dosage: 150 MILLIGRAM, BID
  5. PREDNISOLONE. [Concomitant]
     Active Substance: PREDNISOLONE
     Indication: GLOMERULONEPHRITIS
     Dosage: 15 MILLIGRAM, QD
     Route: 065
  6. GLICLAZIDE [Concomitant]
     Active Substance: GLICLAZIDE
     Indication: PRODUCT USED FOR UNKNOWN INDICATION
     Dosage: 40 MILLIGRAM, BID
     Route: 065
  7. HYDROXOCOBALAMIN [Concomitant]
     Active Substance: HYDROXOCOBALAMIN
     Indication: PRODUCT USED FOR UNKNOWN INDICATION
     Dosage: 1 MICROGRAM
     Route: 065

REACTIONS (4)
  - Encephalopathy [Recovered/Resolved]
  - Drug hypersensitivity [Recovered/Resolved]
  - Septic shock [Recovered/Resolved]
  - Product use in unapproved indication [Unknown]
